FAERS Safety Report 4659047-2 (Version None)
Quarter: 2005Q2

REPORT INFORMATION
  Report Type: 
  Country: None (occurrence: None)
  Receive Date: 20050509
  Receipt Date: 20050420
  Transmission Date: 20051028
  Serious: Yes (Other)
  Sender: FDA-Public Use
  Company Number: A0363979A

PATIENT
  Age: 16 Year
  Sex: Male
  Weight: 68.0396 kg

DRUGS (2)
  1. PAXIL [Suspect]
     Indication: MENTAL DISORDER
     Dosage: SEE DOSAGE TEXT/ORAL
     Route: 048
     Dates: start: 20010206, end: 20010701
  2. RISPERDAL [Suspect]

REACTIONS (11)
  - ABNORMAL BEHAVIOUR [None]
  - ABNORMAL DREAMS [None]
  - AGGRESSION [None]
  - ANGER [None]
  - DELUSION [None]
  - DRUG WITHDRAWAL SYNDROME [None]
  - MENTAL IMPAIRMENT [None]
  - MURDER [None]
  - OPPOSITIONAL DEFIANT DISORDER [None]
  - POISONING [None]
  - STRESS [None]
